FAERS Safety Report 10251105 (Version 7)
Quarter: 2016Q1

REPORT INFORMATION
  Report Type: Spontaneous
  Country: IT (occurrence: IT)
  Receive Date: 20140620
  Receipt Date: 20160211
  Transmission Date: 20160525
  Serious: Yes (Death, Hospitalization)
  Sender: FDA-Public Use
  Company Number: IT-EXELIXIS-CABO-14004409

PATIENT
  Age: 64 Year
  Sex: Male
  Weight: 64 kg

DRUGS (5)
  1. COMETRIQ [Suspect]
     Active Substance: CABOZANTINIB S-MALATE
     Dosage: 60 MG, QD
     Route: 048
     Dates: start: 20141113, end: 20150624
  2. COMETRIQ [Suspect]
     Active Substance: CABOZANTINIB S-MALATE
     Dosage: 60 MG, QD
     Route: 048
     Dates: start: 20140826, end: 20141103
  3. EUTIROX [Concomitant]
     Active Substance: LEVOTHYROXINE SODIUM
  4. COMETRIQ [Suspect]
     Active Substance: CABOZANTINIB S-MALATE
     Indication: MEDULLARY THYROID CANCER
     Dosage: 140 MG, QD
     Route: 048
     Dates: start: 20140605, end: 20140608
  5. COMETRIQ [Suspect]
     Active Substance: CABOZANTINIB S-MALATE
     Dosage: 100 MG, UNK
     Route: 048
     Dates: start: 20140721, end: 20140727

REACTIONS (11)
  - Asthenia [Recovered/Resolved]
  - Tumour necrosis [Recovered/Resolved]
  - Asthenia [Recovering/Resolving]
  - Diarrhoea [Not Recovered/Not Resolved]
  - Palmar-plantar erythrodysaesthesia syndrome [Recovered/Resolved]
  - Lung infection [Recovered/Resolved]
  - Renal failure [Recovered/Resolved]
  - Malignant neoplasm progression [Fatal]
  - Tumour necrosis [Recovered/Resolved]
  - Infection [Recovered/Resolved]
  - Inflammatory marker increased [Recovering/Resolving]

NARRATIVE: CASE EVENT DATE: 2014
